FAERS Safety Report 9825944 (Version 1)
Quarter: 2013Q4

REPORT INFORMATION
  Report Type: Spontaneous
  Country: US (occurrence: None)
  Receive Date: 20131028
  Receipt Date: 20131028
  Transmission Date: 20140711
  Serious: Yes (Hospitalization)
  Sender: FDA-Public Use
  Company Number: 2013US002263

PATIENT
  Age: 31 Year
  Sex: Female
  Weight: 70.04 kg

DRUGS (1)
  1. ICLUSIG (PONATINIB) TABLET, 45MG [Suspect]
     Indication: CHRONIC MYELOID LEUKAEMIA
     Route: 048
     Dates: start: 20130801, end: 20130804

REACTIONS (3)
  - Pyrexia [None]
  - Pain [None]
  - Headache [None]
